FAERS Safety Report 7580691-7 (Version None)
Quarter: 2011Q2

REPORT INFORMATION
  Report Type: 
  Country: None (occurrence: None)
  Receive Date: 20110629
  Receipt Date: 20110624
  Transmission Date: 20111010
  Serious: Yes (Hospitalization, Other)
  Sender: FDA-Public Use
  Company Number: CA-ABBOTT-11P-028-0834478-00

PATIENT
  Sex: Female
  Weight: 68.1 kg

DRUGS (10)
  1. INDAPAMIDE [Concomitant]
     Indication: HYPERTENSION
     Route: 048
  2. METFORMIN HCL [Concomitant]
     Indication: DIABETES MELLITUS
     Route: 048
  3. HUMIRA [Suspect]
     Indication: RHEUMATOID ARTHRITIS
     Route: 058
     Dates: start: 20090330, end: 20110301
  4. HUMIRA [Suspect]
     Dates: end: 20110401
  5. HUMIRA [Suspect]
     Dates: end: 20110609
  6. FOSAMAX [Concomitant]
     Indication: MINERAL SUPPLEMENTATION
     Route: 048
  7. HYDROCYCLINE [Concomitant]
     Indication: ARTHRITIS
     Route: 048
  8. ATACAND [Concomitant]
     Indication: HYPERTENSION
     Route: 048
  9. METOPROLOL SUCCINATE [Concomitant]
     Indication: HYPERTENSION
     Route: 048
  10. RIVA-D [Concomitant]
     Indication: VITAMIN SUPPLEMENTATION
     Route: 048

REACTIONS (2)
  - BREAST CANCER [None]
  - OVARIAN MASS [None]
